FAERS Safety Report 7491138-3 (Version None)
Quarter: 2011Q2

REPORT INFORMATION
  Report Type: 
  Country: None (occurrence: None)
  Receive Date: 20110519
  Receipt Date: 20110510
  Transmission Date: 20111010
  Serious: Yes (Disabling)
  Sender: FDA-Public Use
  Company Number: BR-ASTRAZENECA-2011SE24283

PATIENT
  Age: 26 Year
  Sex: Female
  Weight: 54 kg

DRUGS (1)
  1. ZOLADEX [Suspect]
     Indication: ENDOMETRIOSIS
     Route: 058
     Dates: start: 20101001, end: 20101210

REACTIONS (18)
  - VOMITING [None]
  - TACHYCARDIA [None]
  - PAIN [None]
  - CARBOHYDRATE ANTIGEN 125 INCREASED [None]
  - DIARRHOEA [None]
  - HEADACHE [None]
  - DIZZINESS [None]
  - ENDOMETRIOSIS [None]
  - APPLICATION SITE PAIN [None]
  - SOMNOLENCE [None]
  - ABDOMINAL PAIN UPPER [None]
  - NAUSEA [None]
  - HYPOTENSION [None]
  - AMENORRHOEA [None]
  - DRUG INEFFECTIVE [None]
  - SYNCOPE [None]
  - PAIN IN EXTREMITY [None]
  - APPLICATION SITE HAEMATOMA [None]
